FAERS Safety Report 4680299-7 (Version None)
Quarter: 2005Q2

REPORT INFORMATION
  Report Type: 
  Country: None (occurrence: None)
  Receive Date: 20050601
  Receipt Date: 20050524
  Transmission Date: 20051028
  Serious: Yes (Death, Hospitalization)
  Sender: FDA-Public Use
  Company Number: 200510082BYL

PATIENT
  Age: 89 Year
  Sex: Female

DRUGS (7)
  1. CIPRO IV [Suspect]
     Indication: PNEUMONIA ASPIRATION
     Dosage: 300 MG, BID, INTRAVENOUS
     Route: 042
     Dates: start: 20050208, end: 20050212
  2. HABEKACIN [Concomitant]
  3. STRONG NEO-MINOHAGEN [Concomitant]
  4. PANTOL [Concomitant]
  5. BISOLVON [Concomitant]
  6. LASIX [Concomitant]
  7. SOLDACTONE [Concomitant]

REACTIONS (7)
  - CARDIAC FAILURE [None]
  - CONDITION AGGRAVATED [None]
  - HYPERKALAEMIA [None]
  - PNEUMONIA [None]
  - RENAL FAILURE [None]
  - RENAL IMPAIRMENT [None]
  - THROMBOCYTOPENIA [None]
